FAERS Safety Report 8624204-7 (Version None)
Quarter: 2012Q3

REPORT INFORMATION
  Report Type: 
  Country: None (occurrence: None)
  Receive Date: 20120827
  Receipt Date: 20120622
  Transmission Date: 20120928
  Serious: No
  Sender: FDA-Public Use
  Company Number: US-VERTEX PHARMACEUTICALS INC.-AE-2012-009491

PATIENT
  Sex: Female

DRUGS (2)
  1. KALYDECO [Suspect]
     Indication: CYSTIC FIBROSIS
     Dates: start: 20120516
  2. PULMOZYME [Concomitant]

REACTIONS (9)
  - INSOMNIA [None]
  - SINUS HEADACHE [None]
  - STRESS [None]
  - DYSPNOEA [None]
  - OROPHARYNGEAL PAIN [None]
  - SINUS DISORDER [None]
  - PULMONARY CONGESTION [None]
  - PRODUCTIVE COUGH [None]
  - FATIGUE [None]
